FAERS Safety Report 4375494-0 (Version None)
Quarter: 2004Q2

REPORT INFORMATION
  Report Type: 
  Country: None (occurrence: None)
  Receive Date: 20040607
  Receipt Date: 20040527
  Transmission Date: 20050107
  Serious: Yes (Disabling, Congenital Anomaly, Other)
  Sender: FDA-Public Use
  Company Number: 2004035516

PATIENT
  Sex: Male

DRUGS (1)
  1. LIPITOR [Suspect]
     Indication: ILL-DEFINED DISORDER
     Dosage: 80 MG (80 MG, UNKNOWN)

REACTIONS (3)
  - ANGINA UNSTABLE [None]
  - DISEASE RECURRENCE [None]
  - MYOCARDIAL INFARCTION [None]
